FAERS Safety Report 5448902-1 (Version None)
Quarter: 2007Q3

REPORT INFORMATION
  Report Type: 
  Country: None (occurrence: None)
  Receive Date: 20070911
  Receipt Date: 20070903
  Transmission Date: 20080115
  Serious: Yes (Life-Threatening, Hospitalization)
  Sender: FDA-Public Use
  Company Number: FR-AVENTIS-200712827FR

PATIENT
  Age: 65 Year
  Sex: Female
  Weight: 74 kg

DRUGS (10)
  1. LOVENOX [Suspect]
     Indication: VENOUS THROMBOSIS
     Route: 058
     Dates: start: 20070703
  2. GLEEVEC [Suspect]
     Route: 048
     Dates: start: 20070612
  3. GLUCOPHAGE [Concomitant]
     Indication: DIABETES MELLITUS
     Route: 048
     Dates: start: 19980101
  4. INSULINE [Concomitant]
     Indication: DIABETES MELLITUS
     Route: 058
     Dates: start: 19980101
  5. DEXAMETHASONE 0.5MG TAB [Concomitant]
     Dates: start: 20070612
  6. VINCRISTINE [Concomitant]
     Dates: start: 20070612
  7. METHOTREXATE [Concomitant]
     Dates: start: 20070614
  8. HYDROCORTISONE HEMISUCCINATE [Concomitant]
     Dates: start: 20070614
  9. CYTARABINE [Concomitant]
     Dates: start: 20070614
  10. PURINETHOL [Concomitant]
     Dates: start: 20070803

REACTIONS (3)
  - ANAEMIA [None]
  - DRUG INTERACTION [None]
  - SUBDURAL HAEMATOMA [None]
